FAERS Safety Report 5275125-1 (Version None)
Quarter: 2007Q1

REPORT INFORMATION
  Report Type: 
  Country: None (occurrence: None)
  Receive Date: 20070326
  Receipt Date: 20070314
  Transmission Date: 20070707
  Serious: Yes (Other)
  Sender: FDA-Public Use
  Company Number: PHBS2007CA04704

PATIENT
  Sex: Male

DRUGS (1)
  1. PAMIDRONATE DISODIUM [Suspect]
     Indication: OSTEOGENESIS IMPERFECTA

REACTIONS (1)
  - UPPER LIMB FRACTURE [None]
